FAERS Safety Report 25115386 (Version 4)
Quarter: 2025Q2

REPORT INFORMATION
  Report Type: Report from Study
  Country: CA (occurrence: CA)
  Receive Date: 20250324
  Receipt Date: 20250417
  Transmission Date: 20250717
  Serious: Yes (Hospitalization)
  Sender: ABBVIE
  Company Number: CA-ABBVIE-6188236

PATIENT
  Age: 53 Year
  Sex: Female

DRUGS (1)
  1. RINVOQ [Suspect]
     Active Substance: UPADACITINIB
     Indication: Crohn^s disease
     Dosage: FOR 12 WEEKS, FORM STRENGTH- 45 MG, STOP DATE : 2025
     Route: 048
     Dates: start: 20250219

REACTIONS (13)
  - Gastrooesophageal reflux disease [Unknown]
  - Dyspepsia [Recovering/Resolving]
  - Oesophageal pain [Unknown]
  - Tongue discomfort [Unknown]
  - Hepatic enzyme increased [Unknown]
  - Swelling [Unknown]
  - Pain [Unknown]
  - Discomfort [Unknown]
  - Drug hypersensitivity [Recovering/Resolving]
  - Acne [Recovering/Resolving]
  - Pruritus [Unknown]
  - Abdominal pain upper [Recovering/Resolving]
  - Gastric ulcer [Unknown]

NARRATIVE: CASE EVENT DATE: 20250101
